FAERS Safety Report 7888007-3 (Version None)
Quarter: 2011Q4

REPORT INFORMATION
  Report Type: 
  Country: None (occurrence: None)
  Receive Date: 20111102
  Receipt Date: 20111018
  Transmission Date: 20120403
  Serious: Yes (Hospitalization)
  Sender: FDA-Public Use
  Company Number: AUR-APL-2009-01604

PATIENT
  Age: 82 Year
  Sex: Female

DRUGS (8)
  1. PANTOPRAZOLE [Concomitant]
  2. NITROGLYCERIN [Suspect]
     Indication: PRODUCT USED FOR UNKNOWN INDICATION
     Dosage: 5 MG (5 MG,1 IN 1 D),TRANSDERMAL
     Route: 062
     Dates: start: 20110718, end: 20110718
  3. ARICEPT [Suspect]
     Indication: PRODUCT USED FOR UNKNOWN INDICATION
     Dosage: ORAL
     Route: 048
     Dates: start: 20080612, end: 20090612
  4. ARICEPT [Suspect]
     Indication: PRODUCT USED FOR UNKNOWN INDICATION
     Dosage: ORAL
     Route: 048
     Dates: start: 20100719, end: 20110718
  5. TAREG (VALSARTAN) [Suspect]
     Indication: PRODUCT USED FOR UNKNOWN INDICATION
     Dosage: 80 MG (80 MG,1 IN 1 D),ORAL
     Route: 048
     Dates: start: 20100719, end: 20110728
  6. TAREG (VALSARTAN) [Suspect]
     Indication: PRODUCT USED FOR UNKNOWN INDICATION
     Dosage: 80 MG (80 MG,1 IN 1 D),ORAL
     Route: 048
     Dates: start: 20080612, end: 20090612
  7. PAROXETINE HCL [Suspect]
     Indication: PRODUCT USED FOR UNKNOWN INDICATION
     Dosage: (1 DOSAGE FORMS),ORAL
     Route: 048
     Dates: start: 20080612, end: 20090612
  8. PAROXETINE HCL [Suspect]
     Indication: PRODUCT USED FOR UNKNOWN INDICATION
     Dosage: (1 DOSAGE FORMS),ORAL
     Route: 048
     Dates: start: 20100719, end: 20110718

REACTIONS (3)
  - SYNCOPE [None]
  - PRESYNCOPE [None]
  - HYPOTENSION [None]
